FAERS Safety Report 12613943 (Version 1)
Quarter: 2016Q3

REPORT INFORMATION
  Report Type: Spontaneous
  Country: US (occurrence: US)
  Receive Date: 20160802
  Receipt Date: 20160802
  Transmission Date: 20161109
  Serious: No
  Sender: FDA-Public Use
  Company Number: US-PFIZER INC-2016363155

PATIENT
  Age: 59 Year
  Sex: Female
  Weight: 92.8 kg

DRUGS (11)
  1. SOMA [Concomitant]
     Active Substance: CARISOPRODOL
     Indication: MUSCULOSKELETAL DISCOMFORT
  2. VENLAFAXINE HCL [Suspect]
     Active Substance: VENLAFAXINE HYDROCHLORIDE
     Indication: ANXIETY
     Dosage: 150 MG, 1X/DAY
     Route: 048
  3. BENLYSTA [Concomitant]
     Active Substance: BELIMUMAB
     Indication: SYSTEMIC LUPUS ERYTHEMATOSUS
     Dosage: INFUSION ONCE A MONTH
  4. ZOLOFT [Suspect]
     Active Substance: SERTRALINE HYDROCHLORIDE
     Indication: ANXIETY
     Dosage: 50 MG, 1X/DAY
  5. PANTOPRAZOLE [Concomitant]
     Active Substance: PANTOPRAZOLE SODIUM
     Indication: GASTROOESOPHAGEAL REFLUX DISEASE
     Dosage: ONCE IN THE MORNING
  6. ZOLOFT [Suspect]
     Active Substance: SERTRALINE HYDROCHLORIDE
     Dosage: 100 MG, 1X/DAY
     Dates: start: 20160624
  7. SOMA [Concomitant]
     Active Substance: CARISOPRODOL
     Indication: BACK DISORDER
     Dosage: ONE TABLET BY MOUTH AS NEEDED
     Route: 048
  8. LOSARTAN. [Concomitant]
     Active Substance: LOSARTAN
     Indication: HYPERTENSION
     Dosage: 100 MG, 1X/DAY
  9. MYCOPHENOLATE [Concomitant]
     Active Substance: MYCOPHENOLIC ACID
     Indication: SYSTEMIC LUPUS ERYTHEMATOSUS
     Dosage: TWO IN THE MORNING AND ONE AT NIGHT
  10. ZOLPIDEM [Concomitant]
     Active Substance: ZOLPIDEM\ZOLPIDEM TARTRATE
     Indication: INSOMNIA
     Dosage: ONE TABLET BY MOUTH AS NEEDED
     Route: 048
  11. VENLAFAXINE HCL [Suspect]
     Active Substance: VENLAFAXINE HYDROCHLORIDE
     Dosage: 300 MG, DAILY
     Route: 048
     Dates: start: 20160502, end: 20160716

REACTIONS (4)
  - Drug ineffective [Unknown]
  - Anxiety [Unknown]
  - Condition aggravated [Unknown]
  - Prescribed overdose [Unknown]
